FAERS Safety Report 7792206-9 (Version None)
Quarter: 2011Q4

REPORT INFORMATION
  Report Type: 
  Country: None (occurrence: None)
  Receive Date: 20111003
  Receipt Date: 20111003
  Transmission Date: 20120403
  Serious: Yes (Hospitalization, Other)
  Sender: FDA-Public Use
  Company Number: None

PATIENT
  Sex: Female
  Weight: 47.173 kg

DRUGS (1)
  1. CIPROFLOXACIN HCL [Suspect]
     Indication: URINARY TRACT INFECTION
     Dosage: 1 TABLET
     Route: 048
     Dates: start: 20110907, end: 20110908

REACTIONS (7)
  - CHEST PAIN [None]
  - PALPITATIONS [None]
  - HEART RATE INCREASED [None]
  - DYSPNOEA [None]
  - PAIN IN EXTREMITY [None]
  - ARTHRALGIA [None]
  - DYSPHAGIA [None]
